FAERS Safety Report 16740703 (Version 1)
Quarter: 2019Q4

REPORT INFORMATION
  Report Type: Spontaneous
  Country: US (occurrence: US)
  Receive Date: 20190825
  Receipt Date: 20190825
  Transmission Date: 20200122
  Serious: No
  Sender: FDA-Public Use
  Company Number: None

PATIENT
  Age: 34 Year
  Weight: 120.15 kg

DRUGS (1)
  1. CLONAZEPAM 2MG [Suspect]
     Active Substance: CLONAZEPAM
     Indication: SLEEP TERROR
     Dosage: ?          QUANTITY:1 TABLET(S);?
     Route: 048
     Dates: start: 20171115, end: 20190825

REACTIONS (4)
  - Drug ineffective [None]
  - Product quality issue [None]
  - Sleep disorder [None]
  - Suspected product tampering [None]

NARRATIVE: CASE EVENT DATE: 20190820
